FAERS Safety Report 5139884-0 (Version None)
Quarter: 2006Q4

REPORT INFORMATION
  Report Type: 
  Country: None (occurrence: None)
  Receive Date: 20061025
  Receipt Date: 20061025
  Transmission Date: 20070319
  Serious: Yes (Other)
  Sender: FDA-Public Use
  Company Number: None

PATIENT
  Age: 79 Year
  Sex: Male
  Weight: 74.8 kg

DRUGS (8)
  1. HYDROCHLOROTHIAZIDE [Suspect]
  2. LORATADINE [Concomitant]
  3. ATENOLOL [Concomitant]
  4. VALSARTAN [Concomitant]
  5. FINASTERIDE [Concomitant]
  6. SIMVASTATIN [Concomitant]
  7. ALBUTEROL [Concomitant]
  8. FLUNISOLIDE [Concomitant]

REACTIONS (1)
  - MUSCLE SPASMS [None]
